FAERS Safety Report 8471581-6 (Version None)
Quarter: 2012Q2

REPORT INFORMATION
  Report Type: 
  Country: None (occurrence: None)
  Receive Date: 20120627
  Receipt Date: 20120618
  Transmission Date: 20120825
  Serious: Yes (Other)
  Sender: FDA-Public Use
  Company Number: FI-ROCHE-1079469

PATIENT
  Sex: Female

DRUGS (7)
  1. LAPATINIB [Concomitant]
     Indication: BREAST CANCER METASTATIC
  2. XELODA [Suspect]
     Dosage: RESTARTED WITH DOSE REDUCED
  3. CISPLATIN [Concomitant]
     Indication: BREAST CANCER METASTATIC
  4. HERCEPTIN [Concomitant]
     Indication: BREAST CANCER METASTATIC
  5. PACLITAXEL [Concomitant]
     Indication: BREAST CANCER METASTATIC
  6. XELODA [Suspect]
     Indication: BREAST CANCER METASTATIC
     Dates: start: 20120528
  7. HERCEPTIN [Concomitant]
     Dates: start: 20120528

REACTIONS (3)
  - CONVULSION [None]
  - DIARRHOEA [None]
  - NAUSEA [None]
